FAERS Safety Report 8396437-9 (Version None)
Quarter: 2012Q2

REPORT INFORMATION
  Report Type: 
  Country: None (occurrence: None)
  Receive Date: 20120530
  Receipt Date: 20120515
  Transmission Date: 20120825
  Serious: Yes (Life-Threatening, Hospitalization)
  Sender: FDA-Public Use
  Company Number: CH-ROCHE-1069197

PATIENT
  Age: 51 Year
  Sex: Male

DRUGS (10)
  1. COPEGUS [Suspect]
     Indication: HEPATITIS C
     Dosage: ALTERNATING DOSE REGIMEN: DAY 1: 1-0-0 (200 MG/D); DAY 2: 1-0-1 (400 MG/D)
     Route: 048
     Dates: start: 20120413, end: 20120423
  2. NOVORAPID [Concomitant]
     Route: 058
  3. EXFORGE [Concomitant]
     Route: 048
     Dates: start: 20120412
  4. INSPRA [Concomitant]
     Route: 048
     Dates: start: 20120412
  5. PANTOZOL (SWITZERLAND) [Concomitant]
     Route: 048
  6. EUTHYROX [Concomitant]
     Route: 048
     Dates: start: 19830101
  7. PEGASYS [Suspect]
     Indication: HEPATITIS C
     Route: 058
     Dates: start: 20120413, end: 20120423
  8. INCIVO [Suspect]
     Indication: HEPATITIS C
     Route: 048
     Dates: start: 20120413, end: 20120423
  9. TORSEMIDE [Concomitant]
     Route: 048
     Dates: start: 20120412
  10. RAMIPRIL [Concomitant]
     Route: 048
     Dates: end: 20120412

REACTIONS (12)
  - HYPONATRAEMIA [None]
  - NAUSEA [None]
  - DIARRHOEA [None]
  - RENAL FAILURE CHRONIC [None]
  - INCORRECT DOSE ADMINISTERED [None]
  - HYPERKALAEMIA [None]
  - METABOLIC ACIDOSIS [None]
  - VOMITING [None]
  - ANURIA [None]
  - CHILLS [None]
  - PYREXIA [None]
  - SEPSIS [None]
